FAERS Safety Report 5104497-3 (Version None)
Quarter: 2006Q3

REPORT INFORMATION
  Report Type: 
  Country: None (occurrence: None)
  Receive Date: 20060908
  Receipt Date: 20060908
  Transmission Date: 20061208
  Serious: No
  Sender: FDA-Public Use
  Company Number: None

PATIENT
  Sex: Male
  Weight: 91.3091 kg

DRUGS (3)
  1. SEPTRA [Suspect]
     Indication: SKIN ULCER
     Dosage: 800/160 TWICE A DAY PO
     Route: 048
     Dates: start: 20060518, end: 20060525
  2. CLOPIDOGREL BISULFATE [Concomitant]
  3. HYDROCODONE 5/ACETAMINOPHEN [Concomitant]

REACTIONS (1)
  - OEDEMA PERIPHERAL [None]
